FAERS Safety Report 22112424 (Version 1)
Quarter: 2023Q1

REPORT INFORMATION
  Report Type: Spontaneous
  Country: HR (occurrence: HR)
  Receive Date: 20230319
  Receipt Date: 20230319
  Transmission Date: 20230418
  Serious: Yes (Hospitalization)
  Sender: FDA-Public Use
  Company Number: HR-BAYER-2023A035538

PATIENT
  Age: 85 Year
  Sex: Female

DRUGS (11)
  1. XARELTO [Suspect]
     Active Substance: RIVAROXABAN
     Indication: Atrial fibrillation
     Dosage: 15 MG
     Route: 048
  2. FUROSEMIDE [Concomitant]
     Active Substance: FUROSEMIDE
  3. POTASSIUM BICARBONATE;POTASSIUM CITRATE [Concomitant]
  4. GLIQUIDONE [Concomitant]
     Active Substance: GLIQUIDONE
     Dosage: 30 MG
  5. LINAGLIPTIN [Concomitant]
     Active Substance: LINAGLIPTIN
     Dosage: 5 MG
  6. PANTOPRAZOLE [Concomitant]
     Active Substance: PANTOPRAZOLE
     Dosage: 20 MG
  7. CARVEDILOL [Concomitant]
     Active Substance: CARVEDILOL
     Dosage: 6.25 MG
  8. OXYCODONE/NALOXONE G.L. [Concomitant]
  9. PREGABALIN [Concomitant]
     Active Substance: PREGABALIN
     Dosage: 75 MG
  10. DULOXETINE [Concomitant]
     Active Substance: DULOXETINE
     Dosage: 60 MG
  11. OXYGEN [Concomitant]
     Active Substance: OXYGEN

REACTIONS (2)
  - Dyspnoea [Unknown]
  - Left ventricular failure [Unknown]
